FAERS Safety Report 13244228 (Version 1)
Quarter: 2017Q1

REPORT INFORMATION
  Report Type: Spontaneous
  Country: US (occurrence: US)
  Receive Date: 20170216
  Receipt Date: 20170216
  Transmission Date: 20170428
  Serious: No
  Sender: FDA-Public Use
  Company Number: US-RELYPSA-RLY2017000339

PATIENT
  Sex: Female

DRUGS (9)
  1. LASIX [Concomitant]
     Active Substance: FUROSEMIDE
  2. ZETIA [Concomitant]
     Active Substance: EZETIMIBE
  3. TRESIBA [Concomitant]
     Active Substance: INSULIN DEGLUDEC
  4. SINGULAIR [Concomitant]
     Active Substance: MONTELUKAST SODIUM
  5. VELTASSA [Suspect]
     Active Substance: PATIROMER
     Indication: HYPERKALAEMIA
     Dosage: 8.4 G, QD
     Route: 048
     Dates: start: 20160812
  6. NOVOLOG [Concomitant]
     Active Substance: INSULIN ASPART
  7. COZAAR [Concomitant]
     Active Substance: LOSARTAN POTASSIUM
  8. COLCRYS [Concomitant]
     Active Substance: COLCHICINE
  9. COREG [Concomitant]
     Active Substance: CARVEDILOL

REACTIONS (1)
  - Constipation [Not Recovered/Not Resolved]
